FAERS Safety Report 25201532 (Version 1)
Quarter: 2025Q2

REPORT INFORMATION
  Report Type: Spontaneous
  Country: CA (occurrence: CA)
  Receive Date: 20250416
  Receipt Date: 20250416
  Transmission Date: 20250717
  Serious: Yes (Other)
  Sender: TEVA
  Company Number: CA-TEVA-VS-3322293

PATIENT
  Age: 74 Year
  Sex: Male

DRUGS (1)
  1. IRINOTECAN HYDROCHLORIDE [Suspect]
     Active Substance: IRINOTECAN HYDROCHLORIDE
     Indication: Product used for unknown indication
     Route: 041

REACTIONS (7)
  - Chest discomfort [Unknown]
  - Abdominal pain [Unknown]
  - Back pain [Unknown]
  - Throat tightness [Unknown]
  - Dyspnoea [Unknown]
  - Lacrimation increased [Unknown]
  - Dizziness [Unknown]
